FAERS Safety Report 8613085-3 (Version None)
Quarter: 2012Q3

REPORT INFORMATION
  Report Type: 
  Country: None (occurrence: None)
  Receive Date: 20120822
  Receipt Date: 20120810
  Transmission Date: 20120928
  Serious: Yes (Other)
  Sender: FDA-Public Use
  Company Number: JP-VERTEX PHARMACEUTICAL INC.-2012-019702

PATIENT
  Age: 57 Year
  Sex: Female

DRUGS (16)
  1. RIBAVIRIN [Suspect]
     Indication: HEPATITIS C
     Dosage: 600 MG, QD
     Route: 048
     Dates: start: 20120619, end: 20120716
  2. DIAZEPAM [Concomitant]
     Dosage: 2 MG, PRN
     Route: 048
  3. SELBEX [Concomitant]
     Dosage: 50 MG, QD
     Route: 048
     Dates: start: 20120620
  4. RIBAVIRIN [Suspect]
     Dosage: 400 MG, QD
     Route: 048
     Dates: start: 20120717, end: 20120723
  5. PEGINTERFERON ALFA-2B [Suspect]
     Dosage: 0.8 A?G/KG, UNK
     Route: 058
     Dates: start: 20120626, end: 20120709
  6. TEGRETOL [Concomitant]
     Dosage: 400 MG, QD
     Route: 048
  7. VITAMIN B12 [Concomitant]
     Dosage: 1000 MG, UNK
     Route: 048
  8. RIBAVIRIN [Suspect]
     Dosage: 200 MG, QD
     Route: 048
     Dates: start: 20120724
  9. PEGINTERFERON ALFA-2B [Suspect]
     Indication: HEPATITIS C
     Dosage: 1.5 A?G/KG, UNK
     Route: 058
     Dates: start: 20120619, end: 20120625
  10. NEOPHAGEN                          /00467204/ [Concomitant]
     Dosage: 6 DF, UNK
     Route: 048
     Dates: end: 20120618
  11. VX-950 [Suspect]
     Indication: HEPATITIS C
     Dosage: 2250 MG, UNK
     Route: 048
     Dates: start: 20120619
  12. VITADAN [Concomitant]
     Dosage: 4 DF, QD
     Route: 048
  13. DIAZEPAM [Concomitant]
     Dosage: 2 MG, PRN
     Route: 048
  14. TOPIRAMATE [Concomitant]
     Dosage: 100 MG, QD
     Route: 048
  15. PEGINTERFERON ALFA-2B [Suspect]
     Dosage: 1 A?G/KG, UNK
     Route: 058
     Dates: start: 20120710, end: 20120730
  16. PEGINTERFERON ALFA-2B [Suspect]
     Dosage: 1.25 A?G/KG, UNK
     Route: 058
     Dates: start: 20120731

REACTIONS (2)
  - WHITE BLOOD CELL COUNT DECREASED [None]
  - NEUTROPHIL COUNT DECREASED [None]
